FAERS Safety Report 12957849 (Version 1)
Quarter: 2016Q4

REPORT INFORMATION
  Report Type: Not Available
  Country: US (occurrence: US)
  Receive Date: 20161118
  Receipt Date: 20161118
  Transmission Date: 20170207
  Serious: No
  Sender: FDA-Public Use
  Company Number: US-ANIPHARMA-2016-US-005853

PATIENT
  Age: 82 Year
  Sex: Male

DRUGS (5)
  1. XTANDI [Suspect]
     Active Substance: ENZALUTAMIDE
     Dosage: 160 MG ONCE DAILY
     Route: 048
     Dates: start: 20160316
  2. LUPRON [Suspect]
     Active Substance: LEUPROLIDE ACETATE
     Dosage: UNKNOWN
     Route: 065
  3. METRONIDAZOLE. [Suspect]
     Active Substance: METRONIDAZOLE
     Dosage: UNKNOWN
     Route: 065
  4. CIPROFLOXACIN HCL [Suspect]
     Active Substance: CIPROFLOXACIN HYDROCHLORIDE
     Dosage: UNKNOWN
     Route: 065
  5. NILUTAMIDE TABLETS [Suspect]
     Active Substance: NILUTAMIDE
     Dosage: UNKNOWN
     Route: 048

REACTIONS (12)
  - Flatulence [Unknown]
  - Apathy [Unknown]
  - Burning sensation [Unknown]
  - Asthenia [Unknown]
  - Diverticulitis [Unknown]
  - Arthralgia [Unknown]
  - Pain [Unknown]
  - Insomnia [Unknown]
  - Pain in extremity [Unknown]
  - Hot flush [Unknown]
  - Prostatic specific antigen increased [Unknown]
  - Hyperhidrosis [Unknown]
